FAERS Safety Report 10263759 (Version 2)
Quarter: 2014Q2

REPORT INFORMATION
  Report Type: Report from Study
  Country: US (occurrence: US)
  Receive Date: 20140627
  Receipt Date: 20140627
  Transmission Date: 20141212
  Serious: Yes (Hospitalization, Other)
  Sender: FDA-Public Use
  Company Number: US-ROCHE-1414435

PATIENT
  Age: 64 Year
  Sex: Female

DRUGS (11)
  1. HERCEPTIN [Suspect]
     Indication: BREAST CANCER
     Dosage: ADJUVANT
     Route: 065
  2. HERCEPTIN [Suspect]
     Indication: HER-2 POSITIVE BREAST CANCER
     Route: 042
     Dates: start: 20120830
  3. HERCEPTIN [Suspect]
     Route: 042
     Dates: start: 20130117, end: 20130620
  4. PARAPLATIN [Concomitant]
     Route: 065
     Dates: start: 20120830, end: 20130110
  5. TAXOTERE [Concomitant]
     Route: 065
     Dates: start: 20120830, end: 20130110
  6. FEMARA [Concomitant]
  7. METFORMIN [Concomitant]
     Indication: DIABETES MELLITUS
     Dosage: 2 TABS
     Route: 048
  8. KEPPRA [Concomitant]
     Indication: CONVULSION
     Route: 048
  9. EXFORGE [Concomitant]
     Indication: HYPERTENSION
     Dosage: 5/320
     Route: 048
  10. ROSUVASTATIN [Concomitant]
     Indication: HYPERCHOLESTEROLAEMIA
     Route: 048
  11. NEXIUM [Concomitant]
     Indication: PROPHYLAXIS
     Route: 048

REACTIONS (3)
  - Chest pain [Recovered/Resolved]
  - Bradycardia [Recovered/Resolved]
  - Cardiac failure congestive [Unknown]
